FAERS Safety Report 15436266 (Version 1)
Quarter: 2018Q3

REPORT INFORMATION
  Report Type: Spontaneous
  Country: SE (occurrence: SE)
  Receive Date: 20180927
  Receipt Date: 20180927
  Transmission Date: 20181010
  Serious: Yes (Death)
  Sender: FDA-Public Use
  Company Number: SE-JNJFOC-20180928985

PATIENT
  Age: 80 Year
  Sex: Male

DRUGS (3)
  1. IPREN [Suspect]
     Active Substance: IBUPROFEN
     Indication: SCIATICA
     Dosage: INITIALLY 400 MG 1X2, AFTER A FEW DAYS HALF DOSE
     Route: 048
     Dates: start: 20170820, end: 20170920
  2. PARACETAMOL [Concomitant]
     Active Substance: ACETAMINOPHEN
     Indication: PRODUCT USED FOR UNKNOWN INDICATION
     Route: 065
     Dates: start: 20170820, end: 20170920
  3. IPREN [Suspect]
     Active Substance: IBUPROFEN
     Route: 048

REACTIONS (2)
  - Idiosyncratic drug reaction [Fatal]
  - Acute hepatic failure [Fatal]

NARRATIVE: CASE EVENT DATE: 20170820
